FAERS Safety Report 8381883-X (Version None)
Quarter: 2012Q2

REPORT INFORMATION
  Report Type: 
  Country: None (occurrence: None)
  Receive Date: 20120523
  Receipt Date: 20120523
  Transmission Date: 20120825
  Serious: Yes (Disabling)
  Sender: FDA-Public Use
  Company Number: None

PATIENT
  Sex: Male
  Weight: 72.5755 kg

DRUGS (1)
  1. FUROSEMIDE [Suspect]
     Indication: FLUID RETENTION
     Dosage: 1 TABLET EVERY MORNING BY MOUTH
     Dates: start: 20111101

REACTIONS (5)
  - DEAFNESS UNILATERAL [None]
  - GAIT DISTURBANCE [None]
  - HYPOACUSIS [None]
  - VERTIGO [None]
  - TINNITUS [None]
